FAERS Safety Report 5772055-3 (Version None)
Quarter: 2008Q2

REPORT INFORMATION
  Report Type: 
  Country: None (occurrence: None)
  Receive Date: 20080612
  Receipt Date: 20080612
  Transmission Date: 20081010
  Serious: Yes (Other)
  Sender: FDA-Public Use
  Company Number: None

PATIENT
  Sex: Female
  Weight: 68.9467 kg

DRUGS (1)
  1. ZOCOR [Suspect]
     Indication: HYPERCHOLESTEROLAEMIA
     Dosage: 20MG ONCE DAILY PO
     Route: 048
     Dates: start: 20071101, end: 20080301

REACTIONS (4)
  - AMNESIA [None]
  - CRYING [None]
  - DEPRESSION [None]
  - IMPAIRED WORK ABILITY [None]
